FAERS Safety Report 8880473 (Version 2)
Quarter: 2012Q4

REPORT INFORMATION
  Report Type: 
  Country: US (occurrence: US)
  Receive Date: 20121031
  Receipt Date: 20121116
  Transmission Date: 20130627
  Serious: Yes (Death)
  Sender: FDA-Public Use
  Company Number: US-ROCHE-1150835

PATIENT
  Sex: Female
  Weight: 60.84 kg

DRUGS (8)
  1. BONIVA [Suspect]
     Indication: OSTEOPOROSIS
     Route: 048
     Dates: start: 200604, end: 201106
  2. NORVASC [Concomitant]
     Indication: HYPERTENSION
     Route: 065
  3. JANUVIA [Concomitant]
     Indication: DIABETES MELLITUS
     Route: 065
  4. SYNTHROID [Concomitant]
     Indication: HYPOTHYROIDISM
     Route: 065
  5. METOPROLOL [Concomitant]
     Route: 065
  6. BENICAR [Concomitant]
     Dosage: 40/12.5
     Route: 065
  7. ASPIRIN [Concomitant]
     Route: 065
  8. ARICEPT [Concomitant]
     Route: 065

REACTIONS (1)
  - Endometrial cancer [Fatal]
